FAERS Safety Report 5311260-7 (Version None)
Quarter: 2007Q2

REPORT INFORMATION
  Report Type: 
  Country: None (occurrence: None)
  Receive Date: 20070430
  Receipt Date: 20070419
  Transmission Date: 20071010
  Serious: Yes (Other)
  Sender: FDA-Public Use
  Company Number: PHBS2006BR16860

PATIENT
  Age: 44 Year
  Sex: Male
  Weight: 73 kg

DRUGS (5)
  1. SLOW-K [Suspect]
     Indication: HYPOKALAEMIA
     Dosage: 600 MG, BID
     Route: 048
  2. SLOW-K [Suspect]
     Dosage: 600 MG, QD
     Dates: start: 20060414
  3. POTASSIUM CHLORIDE [Suspect]
     Dosage: 2 TABLETS/DAY
     Route: 048
     Dates: start: 20070414
  4. OS-CAL D [Concomitant]
     Indication: THYROID OPERATION
     Route: 048
  5. SYNTHROID [Concomitant]
     Dates: start: 20070201

REACTIONS (2)
  - BLOOD POTASSIUM DECREASED [None]
  - THYROID OPERATION [None]
